FAERS Safety Report 5179236-0 (Version None)
Quarter: 2006Q4

REPORT INFORMATION
  Report Type: 
  Country: None (occurrence: None)
  Receive Date: 20061211
  Receipt Date: 20061128
  Transmission Date: 20070319
  Serious: Yes (Hospitalization)
  Sender: FDA-Public Use
  Company Number: 2006PV025946

PATIENT
  Age: 44 Year
  Sex: Female
  Weight: 153.3158 kg

DRUGS (7)
  1. BYETTA [Suspect]
     Indication: DIABETES MELLITUS NON-INSULIN-DEPENDENT
     Dosage: SEE IMAGE
     Route: 058
     Dates: start: 20060401, end: 20060501
  2. BYETTA [Suspect]
     Indication: DIABETES MELLITUS NON-INSULIN-DEPENDENT
     Dosage: SEE IMAGE
     Route: 058
     Dates: start: 20060501
  3. METFORMIN HCL [Concomitant]
  4. GLIMIPIRIDE [Concomitant]
  5. ACTOS [Concomitant]
  6. ASPIRIN [Concomitant]
  7. FUROSEMIDE [Concomitant]

REACTIONS (7)
  - ABDOMINAL PAIN UPPER [None]
  - DIARRHOEA [None]
  - GASTRIC POLYPS [None]
  - INJECTION SITE BRUISING [None]
  - INJECTION SITE HAEMORRHAGE [None]
  - OEDEMA PERIPHERAL [None]
  - WEIGHT DECREASED [None]
